FAERS Safety Report 8283895-3 (Version None)
Quarter: 2012Q2

REPORT INFORMATION
  Report Type: 
  Country: None (occurrence: None)
  Receive Date: 20120413
  Receipt Date: 20120403
  Transmission Date: 20120825
  Serious: Yes (Other)
  Sender: FDA-Public Use
  Company Number: GB-ELI_LILLY_AND_COMPANY-GB201204001493

PATIENT
  Sex: Male

DRUGS (1)
  1. BYDUREON [Suspect]
     Dosage: 2 MG, UNKNOWN

REACTIONS (2)
  - INFECTION [None]
  - INJECTION SITE REACTION [None]
